FAERS Safety Report 17576195 (Version 1)
Quarter: 2020Q1

REPORT INFORMATION
  Report Type: Spontaneous
  Country: US (occurrence: US)
  Receive Date: 20200323
  Receipt Date: 20200323
  Transmission Date: 20200409
  Serious: Yes (Other)
  Sender: FDA-Public Use
  Company Number: None

PATIENT
  Age: 40 Year
  Sex: Male
  Weight: 101.8 kg

DRUGS (1)
  1. KALETRA [Suspect]
     Active Substance: LOPINAVIR\RITONAVIR
     Indication: CORONA VIRUS INFECTION
     Route: 048
     Dates: start: 20200318, end: 20200319

REACTIONS (8)
  - Dyspnoea [None]
  - Chills [None]
  - Abdominal pain [None]
  - Pain [None]
  - Pyrexia [None]
  - Gastrointestinal disorder [None]
  - Diarrhoea [None]
  - Oropharyngeal pain [None]

NARRATIVE: CASE EVENT DATE: 20200319
